FAERS Safety Report 9951386 (Version 2)
Quarter: 2014Q1

REPORT INFORMATION
  Report Type: Report from Study
  Country: US (occurrence: US)
  Receive Date: 20140304
  Receipt Date: 20140304
  Transmission Date: 20141002
  Serious: No
  Sender: FDA-Public Use
  Company Number: US-ABBVIE-12P-163-1024869-00

PATIENT
  Age: 20 Year
  Sex: Male

DRUGS (3)
  1. HUMIRA [Suspect]
     Indication: CROHN^S DISEASE
     Dates: start: 201211
  2. MULTIVITAMINS [Concomitant]
  3. PROBIOTIC [Concomitant]

REACTIONS (2)
  - Injection site pain [Recovered/Resolved]
  - Pilonidal cyst [Recovered/Resolved]
